FAERS Safety Report 24979512 (Version 2)
Quarter: 2025Q1

REPORT INFORMATION
  Report Type: Report from Study
  Country: FR (occurrence: FR)
  Receive Date: 20250218
  Receipt Date: 20250301
  Transmission Date: 20250408
  Serious: Yes (Hospitalization)
  Sender: ABBVIE
  Company Number: FR-ABBVIE-6133529

PATIENT
  Age: 81 Year
  Sex: Female
  Weight: 49 kg

DRUGS (1)
  1. FOSCARBIDOPA\FOSLEVODOPA [Suspect]
     Active Substance: FOSCARBIDOPA\FOSLEVODOPA
     Indication: Parkinson^s disease
     Route: 058

REACTIONS (1)
  - Dopamine agonist withdrawal syndrome [Recovered/Resolved]

NARRATIVE: CASE EVENT DATE: 20250125
